FAERS Safety Report 6397907-5 (Version None)
Quarter: 2009Q4

REPORT INFORMATION
  Report Type: 
  Country: None (occurrence: None)
  Receive Date: 20091013
  Receipt Date: 20091004
  Transmission Date: 20100525
  Serious: Yes (Hospitalization)
  Sender: FDA-Public Use
  Company Number: CA-ALLERGAN-0913884US

PATIENT
  Age: 42 Year
  Sex: Male

DRUGS (5)
  1. BOTOX [Suspect]
     Indication: CERVICAL MYELOPATHY
     Dosage: 600 UNITS, SINGLE
     Route: 030
     Dates: start: 20050501, end: 20050501
  2. BOTOX [Suspect]
     Dosage: 400 UNITS, SINGLE
     Route: 030
     Dates: start: 20050201, end: 20050201
  3. BACLOFEN [Concomitant]
  4. TIZANIDINE HCL [Concomitant]
  5. DIAZEPAM [Concomitant]

REACTIONS (1)
  - ASTHENIA [None]
